FAERS Safety Report 4528479-5 (Version None)
Quarter: 2004Q4

REPORT INFORMATION
  Report Type: 
  Country: None (occurrence: None)
  Receive Date: 20041216
  Receipt Date: 20041202
  Transmission Date: 20050328
  Serious: Yes (Other)
  Sender: FDA-Public Use
  Company Number: 200413702JP

PATIENT
  Age: 65 Year
  Sex: Female

DRUGS (3)
  1. AMARYL [Suspect]
     Indication: DIABETES MELLITUS
     Route: 048
     Dates: start: 20020709
  2. DIOVAN [Concomitant]
     Route: 048
     Dates: start: 20010918
  3. CONIEL [Concomitant]
     Route: 048
     Dates: start: 20020125

REACTIONS (2)
  - MYOGLOBIN BLOOD INCREASED [None]
  - RHABDOMYOLYSIS [None]
